FAERS Safety Report 22022078 (Version 1)
Quarter: 2023Q1

REPORT INFORMATION
  Report Type: Spontaneous
  Country: FR (occurrence: FR)
  Receive Date: 20230222
  Receipt Date: 20230222
  Transmission Date: 20230418
  Serious: Yes (Life-Threatening)
  Sender: FDA-Public Use
  Company Number: None

PATIENT
  Age: 64 Year
  Sex: Male
  Weight: 73 kg

DRUGS (2)
  1. LINEZOLID [Suspect]
     Active Substance: LINEZOLID
     Indication: Orchitis
     Dosage: 1200 MILLIGRAM DAILY; 600 MG 2 TIMES A DAY
     Route: 065
     Dates: start: 20221215, end: 20221226
  2. METFORMIN [Suspect]
     Active Substance: METFORMIN HYDROCHLORIDE
     Indication: Type 2 diabetes mellitus
     Dosage: 2 GRAM DAILY; 1G TWICE A DAY
     Route: 065
     Dates: end: 20221226

REACTIONS (5)
  - Shock [Recovering/Resolving]
  - Lactic acidosis [Recovering/Resolving]
  - Splenic infarction [Recovering/Resolving]
  - Disseminated intravascular coagulation [Recovering/Resolving]
  - Acute kidney injury [Recovering/Resolving]

NARRATIVE: CASE EVENT DATE: 20221226
